FAERS Safety Report 6825951-X (Version None)
Quarter: 2010Q3

REPORT INFORMATION
  Report Type: 
  Country: None (occurrence: None)
  Receive Date: 20100709
  Receipt Date: 20100630
  Transmission Date: 20110219
  Serious: Yes (Other)
  Sender: FDA-Public Use
  Company Number: ES-JNJFOC-20100507053

PATIENT
  Age: 12 Year
  Sex: Female
  Weight: 20 kg

DRUGS (8)
  1. INTELENCE [Suspect]
     Indication: HIV INFECTION
     Route: 048
  2. INTELENCE [Suspect]
     Route: 048
  3. TENOFOVIR [Interacting]
     Indication: HIV INFECTION
     Route: 065
  4. TENOFOVIR [Interacting]
     Route: 065
  5. PREZISTA [Concomitant]
     Indication: HIV INFECTION
     Route: 048
  6. PREZISTA [Concomitant]
     Route: 048
  7. RITONAVIR [Concomitant]
     Indication: HIV INFECTION
  8. SEPTRIN FORTE [Concomitant]
     Indication: OPPORTUNISTIC INFECTION PROPHYLAXIS

REACTIONS (3)
  - DRUG INTERACTION [None]
  - HYPOKALAEMIA [None]
  - OFF LABEL USE [None]
